FAERS Safety Report 17891903 (Version 1)
Quarter: 2020Q2

REPORT INFORMATION
  Report Type: Spontaneous
  Country: CA (occurrence: CA)
  Receive Date: 20200612
  Receipt Date: 20200612
  Transmission Date: 20200714
  Serious: Yes (Other)
  Sender: FDA-Public Use
  Company Number: CA-PFIZER INC-2020227341

PATIENT
  Age: 24 Year
  Sex: Male

DRUGS (7)
  1. MIDAZOLAM. [Suspect]
     Active Substance: MIDAZOLAM
     Dosage: 1 MG, ONCE
  2. DEXAMETHASONE SODIUM PHOSPHATE. [Suspect]
     Active Substance: DEXAMETHASONE SODIUM PHOSPHATE
     Dosage: 8 MG
  3. PROPOFOL. [Suspect]
     Active Substance: PROPOFOL
     Dosage: 550 MG
  4. MIDAZOLAM. [Suspect]
     Active Substance: MIDAZOLAM
     Dosage: 2 MG/ML
  5. FENTANYL CITRATE SANDOZ [Suspect]
     Active Substance: FENTANYL CITRATE
     Dosage: 100 UG
  6. ONDANSETRON HYDROCHLORIDE DIHYDRATE [Suspect]
     Active Substance: ONDANSETRON HYDROCHLORIDE
     Dosage: 4 MG
  7. KETOROLAC TROMETHAMINE. [Suspect]
     Active Substance: KETOROLAC TROMETHAMINE
     Dosage: 30 MG/ML, ONCE

REACTIONS (3)
  - Lip swelling [Recovered/Resolved]
  - Urticaria [Recovered/Resolved]
  - Periorbital swelling [Recovered/Resolved]
